FAERS Safety Report 4748025-0 (Version None)
Quarter: 2005Q3

REPORT INFORMATION
  Report Type: 
  Country: None (occurrence: None)
  Receive Date: 20050815
  Receipt Date: 20050613
  Transmission Date: 20060218
  Serious: No
  Sender: FDA-Public Use
  Company Number: USA0506100336

PATIENT
  Age: 66 Year
  Sex: Male

DRUGS (3)
  1. CIALIS [Suspect]
     Indication: ORGASMIC SENSATION DECREASED
     Dosage: 20 MG/ 1 DAY
     Dates: start: 20050609, end: 20050612
  2. MULTI-VITAMIN [Concomitant]
  3. FLAX SEED OIL [Concomitant]

REACTIONS (1)
  - PAIN [None]
